FAERS Safety Report 7660231-4 (Version None)
Quarter: 2011Q3

REPORT INFORMATION
  Report Type: 
  Country: None (occurrence: None)
  Receive Date: 20110805
  Receipt Date: 20110727
  Transmission Date: 20111222
  Serious: Yes (Other)
  Sender: FDA-Public Use
  Company Number: PHHY2011US60306

PATIENT
  Sex: Female

DRUGS (23)
  1. LOVAZA [Concomitant]
     Dosage: 122 MG, UNK
  2. NEXIUM [Concomitant]
     Dosage: 40 MG, BID
  3. SLO-MAG [Concomitant]
     Dosage: UNK UKN, QD
  4. MULTIPLE VITAMINS [Concomitant]
     Dosage: UNK UKN, QD
  5. WARFARIN SODIUM [Concomitant]
     Dosage: 2 MG, (2 OR 2.5)
  6. GLUCOSAMINE HYDROCHLORIDE [Concomitant]
     Dosage: 1500 MG, UNK
  7. RECLAST [Suspect]
     Indication: OSTEOPOROSIS
     Dosage: 5 MG, (ONCE YEARLY)
     Route: 042
     Dates: start: 20110629
  8. METOPROLOL TARTRATE [Concomitant]
     Dosage: 25 MG, BID
  9. VOLTAREN 1%GEL [Concomitant]
     Dosage: UNK UKN, UNK
  10. LOVASTATIN [Concomitant]
     Dosage: 20 MG, QD
  11. PREDNISOLONE 1% DROP [Concomitant]
     Dosage: UNK UKN, QD
  12. TRIAM [Concomitant]
     Dosage: UNK UKN, UNK
  13. CARDIAZEM [Concomitant]
     Dosage: UNK UKN, UNK
  14. CALCIUM ACETATE [Concomitant]
     Dosage: 600 MG, UNK
  15. POTASSIUM CHLORIDE [Concomitant]
     Dosage: UNK UKN, BID
  16. CELEBREX [Concomitant]
     Dosage: 200 MG, QD
  17. RESTASIS DROPS [Concomitant]
     Dosage: UNK UKN, UNK
  18. FEMARA [Concomitant]
     Dosage: 2.5 MG, QD
  19. DESYREL [Concomitant]
     Dosage: 50 MG, UNK
  20. NEURO-PHOSPHATES [Concomitant]
     Dosage: 100 MG, (1 OR 2 DAILY)
  21. XIBROM DROPS [Concomitant]
     Dosage: UNK UKN, UNK
  22. XANAX [Concomitant]
     Dosage: 0.25 MG, UNK
  23. GENTEAL [Concomitant]
     Dosage: UNK UKN, UNK

REACTIONS (7)
  - ROAD TRAFFIC ACCIDENT [None]
  - NAUSEA [None]
  - HEADACHE [None]
  - VOMITING [None]
  - PAIN [None]
  - PAIN IN EXTREMITY [None]
  - MOVEMENT DISORDER [None]
